FAERS Safety Report 5019964-0 (Version None)
Quarter: 2006Q2

REPORT INFORMATION
  Report Type: 
  Country: None (occurrence: None)
  Receive Date: 20060607
  Receipt Date: 20060515
  Transmission Date: 20061013
  Serious: Yes (Hospitalization, Other)
  Sender: FDA-Public Use
  Company Number: ES-AMGEN-UK179500

PATIENT
  Age: 25 Year
  Sex: Female
  Weight: 38 kg

DRUGS (7)
  1. ARANESP [Suspect]
     Indication: RENAL FAILURE CHRONIC
     Route: 058
     Dates: start: 20040316, end: 20060425
  2. AZATHIOPRINE [Suspect]
     Route: 048
     Dates: start: 19880526
  3. ENALAPRIL [Suspect]
     Route: 048
     Dates: start: 20030204
  4. PREDNISONE [Concomitant]
     Route: 048
     Dates: start: 19880526
  5. ATORVASTATIN CALCIUM [Concomitant]
     Route: 048
     Dates: start: 20040719
  6. CYANOCOBALAMIN/FOLIC ACID [Concomitant]
     Route: 048
     Dates: start: 20060124
  7. FERRO-GRADUMET [Concomitant]
     Route: 048
     Dates: start: 20060124

REACTIONS (1)
  - APLASIA PURE RED CELL [None]
